APPROVED DRUG PRODUCT: GEMFIBROZIL
Active Ingredient: GEMFIBROZIL
Strength: 600MG
Dosage Form/Route: TABLET;ORAL
Application: A074256 | Product #001
Applicant: TEVA PHARMACEUTICALS USA INC
Approved: Oct 31, 1993 | RLD: No | RS: No | Type: DISCN